FAERS Safety Report 15213024 (Version 4)
Quarter: 2020Q2

REPORT INFORMATION
  Report Type: Report from Study
  Country: NL (occurrence: NL)
  Receive Date: 20180730
  Receipt Date: 20200427
  Transmission Date: 20200713
  Serious: Yes (Death, Life-Threatening, Hospitalization)
  Sender: FDA-Public Use
  Company Number: NL-ROCHE-2159397

PATIENT
  Age: 69 Year
  Sex: Male

DRUGS (9)
  1. FENPROCOUMON [Concomitant]
     Active Substance: PHENPROCOUMON
  2. FOLIUMZUUR [Concomitant]
     Active Substance: FOLIC ACID
     Route: 065
  3. CITALOPRAM [Concomitant]
     Active Substance: CITALOPRAM HYDROBROMIDE
     Route: 065
  4. DICLOFENAC SODIUM. [Concomitant]
     Active Substance: DICLOFENAC SODIUM
     Route: 065
  5. TOCILIZUMAB. [Suspect]
     Active Substance: TOCILIZUMAB
     Indication: RHEUMATOID ARTHRITIS
     Dosage: LAST DOSE: 11/JUN/2018
     Route: 058
     Dates: start: 20160914, end: 20180612
  6. METHOTREXAAT [METHOTREXATE] [Suspect]
     Active Substance: METHOTREXATE
     Indication: RHEUMATOID ARTHRITIS
     Dosage: LAST DOSE: 06/JUN/2018
     Route: 050
     Dates: start: 20180116, end: 20180612
  7. ALENDRONINEZUUR [Concomitant]
     Active Substance: ALENDRONIC ACID
     Route: 065
  8. OMEPRAZOL [OMEPRAZOLE] [Concomitant]
     Active Substance: OMEPRAZOLE
     Route: 065
  9. PREDNISOLON [PREDNISOLONE] [Suspect]
     Active Substance: PREDNISOLONE
     Indication: RHEUMATOID ARTHRITIS
     Route: 050
     Dates: start: 20180116, end: 20180831

REACTIONS (2)
  - Progressive multifocal leukoencephalopathy [Recovering/Resolving]
  - JC virus CSF test positive [Unknown]

NARRATIVE: CASE EVENT DATE: 20180612
